FAERS Safety Report 22111041 (Version 1)
Quarter: 2023Q1

REPORT INFORMATION
  Report Type: Spontaneous
  Country: CN (occurrence: None)
  Receive Date: 20230317
  Receipt Date: 20230317
  Transmission Date: 20230417
  Serious: Yes (Other)
  Sender: FDA-Public Use
  Company Number: 2023A061817

PATIENT
  Age: 52 Year
  Sex: Female

DRUGS (1)
  1. OSIMERTINIB [Suspect]
     Active Substance: OSIMERTINIB
     Indication: Lung adenocarcinoma
     Route: 048
     Dates: start: 201512

REACTIONS (4)
  - Malignant neoplasm progression [Unknown]
  - Hepatic lesion [Unknown]
  - Drug resistance [Unknown]
  - Malignant transformation [Unknown]

NARRATIVE: CASE EVENT DATE: 20160501
